FAERS Safety Report 7875516-6 (Version None)
Quarter: 2011Q4

REPORT INFORMATION
  Report Type: 
  Country: None (occurrence: None)
  Receive Date: 20111031
  Receipt Date: 20111024
  Transmission Date: 20120403
  Serious: Yes (Hospitalization)
  Sender: FDA-Public Use
  Company Number: CA-B.I. PHARMACEUTICALS,INC./RIDGEFIELD-2011-CN-01652CN

PATIENT
  Age: 61 Year
  Sex: Male

DRUGS (7)
  1. METFORMIN HCL [Concomitant]
  2. ESCITALOPRAM [Concomitant]
  3. PERINDOPRIL ERBUMINE [Concomitant]
  4. PANTOPRAZOLE SODIUM [Concomitant]
  5. CRESTOR [Concomitant]
  6. PRADAXA [Suspect]
  7. BISOPROLOL [Concomitant]

REACTIONS (2)
  - TESTICULAR DISORDER [None]
  - MYOCARDIAL INFARCTION [None]
